FAERS Safety Report 5406388-7 (Version None)
Quarter: 2007Q3

REPORT INFORMATION
  Report Type: 
  Country: None (occurrence: None)
  Receive Date: 20070806
  Receipt Date: 20070723
  Transmission Date: 20080115
  Serious: Yes (Hospitalization)
  Sender: FDA-Public Use
  Company Number: US-SHR-US-2007-012291

PATIENT
  Age: 57 Year
  Sex: Female
  Weight: 77.098 kg

DRUGS (26)
  1. BETASERON [Suspect]
     Indication: RELAPSING-REMITTING MULTIPLE SCLEROSIS
     Dosage: UNK, UNK
     Route: 058
     Dates: start: 19981001, end: 20021015
  2. BETASERON [Suspect]
     Dosage: 8 MIU, EVERY 2D
     Route: 058
     Dates: start: 20031201
  3. KEPPRA [Concomitant]
  4. TOPROL-XL [Concomitant]
  5. NORVASC [Concomitant]
  6. LASIX [Concomitant]
  7. K-DUR 10 [Concomitant]
  8. LUNESTA [Concomitant]
  9. ROZEREM [Concomitant]
  10. RESTASIS [Concomitant]
  11. MANDELAMINE ^PARKE DAVIS^ [Concomitant]
  12. NEURONTIN [Concomitant]
  13. NEXIUM [Concomitant]
  14. BACLOFEN [Concomitant]
  15. OXYTROL [Concomitant]
  16. FLONASE [Concomitant]
  17. VYTORIN [Concomitant]
  18. ENABLEX [Concomitant]
  19. VITAMIN CAP [Concomitant]
  20. CALCIUM CHLORIDE [Concomitant]
  21. BENADRYL ^PFIZER WARNER-LAMBERT^ [Concomitant]
  22. COLACE [Concomitant]
  23. DILAUDID [Concomitant]
  24. VICODIN [Concomitant]
  25. ZOFRAN [Concomitant]
  26. ANZEMET [Concomitant]

REACTIONS (2)
  - CHILLS [None]
  - PARALYSIS [None]
